FAERS Safety Report 20509347 (Version 5)
Quarter: 2022Q2

REPORT INFORMATION
  Report Type: Report from Study
  Country: AU (occurrence: AU)
  Receive Date: 20220223
  Receipt Date: 20220620
  Transmission Date: 20220721
  Serious: Yes (Hospitalization, Other)
  Sender: FDA-Public Use
  Company Number: AU-ABBVIE-22K-008-4287607-00

PATIENT
  Age: 80 Year
  Sex: Male

DRUGS (2)
  1. CARBIDOPA\LEVODOPA [Suspect]
     Active Substance: CARBIDOPA\LEVODOPA
     Indication: Parkinson^s disease
     Dosage: 100 MILLILITER GEL CASSETTE
     Route: 050
     Dates: start: 20200303
  2. CARBIDOPA\LEVODOPA [Suspect]
     Active Substance: CARBIDOPA\LEVODOPA
     Route: 050

REACTIONS (16)
  - Haematochezia [Unknown]
  - Urinary sediment abnormal [Unknown]
  - Chromaturia [Unknown]
  - Pyrexia [Unknown]
  - Delirium [Unknown]
  - Embedded device [Not Recovered/Not Resolved]
  - Hallucination [Unknown]
  - Stoma site pain [Unknown]
  - Nausea [Unknown]
  - Decreased appetite [Unknown]
  - Headache [Unknown]
  - Dizziness [Not Recovered/Not Resolved]
  - Stoma site discharge [Not Recovered/Not Resolved]
  - Stoma site extravasation [Not Recovered/Not Resolved]
  - Stoma site odour [Unknown]
  - Stoma site hypergranulation [Not Recovered/Not Resolved]

NARRATIVE: CASE EVENT DATE: 20220202
